FAERS Safety Report 21851574 (Version 1)
Quarter: 2023Q1

REPORT INFORMATION
  Report Type: Spontaneous
  Country: US (occurrence: US)
  Receive Date: 20230112
  Receipt Date: 20230112
  Transmission Date: 20230417
  Serious: Yes (Life-Threatening, Hospitalization, Other)
  Sender: FDA-Public Use
  Company Number: US-PFIZER INC-2020271554

PATIENT
  Age: 85 Year
  Sex: Male

DRUGS (3)
  1. PREDNISONE [Suspect]
     Active Substance: PREDNISONE
     Indication: Kidney transplant rejection
     Dosage: UNK
     Route: 065
  2. RITUXIMAB [Suspect]
     Active Substance: RITUXIMAB
     Indication: Kidney transplant rejection
     Dosage: UNK
     Route: 065
  3. SOLU-MEDROL [Suspect]
     Active Substance: METHYLPREDNISOLONE SODIUM SUCCINATE
     Indication: Kidney transplant rejection
     Dosage: UNK
     Route: 042

REACTIONS (4)
  - Arthralgia [Recovered/Resolved]
  - Skin bacterial infection [Recovered/Resolved]
  - Condition aggravated [Recovered/Resolved]
  - Mycobacterium chelonae infection [Recovered/Resolved]
